FAERS Safety Report 7408746-8 (Version None)
Quarter: 2011Q2

REPORT INFORMATION
  Report Type: 
  Country: None (occurrence: None)
  Receive Date: 20110412
  Receipt Date: 20110330
  Transmission Date: 20111010
  Serious: Yes (Hospitalization, Other)
  Sender: FDA-Public Use
  Company Number: DE-ELI_LILLY_AND_COMPANY-DE201103008642

PATIENT
  Age: 84 Year
  Sex: Female

DRUGS (16)
  1. MIRTAZAPIN [Concomitant]
     Dosage: 30 MG, QD
     Route: 048
     Dates: start: 20110111
  2. PREDNISOLONE [Concomitant]
     Dosage: 5 MG, QD
     Route: 048
  3. MIRTAZAPIN [Concomitant]
     Dosage: 15 MG, QD
     Route: 048
     Dates: start: 20100506, end: 20100812
  4. CYMBALTA [Suspect]
     Dosage: 30 MG, QD
     Route: 048
     Dates: start: 20100927, end: 20101004
  5. CALCIUM [Concomitant]
     Dosage: 2 DF, QD
     Route: 048
  6. CYMBALTA [Suspect]
     Dosage: 60 MG, QD
     Route: 048
     Dates: start: 20101005, end: 20101213
  7. PANTOPRAZOLE SODIUM [Concomitant]
     Dosage: 40 MG, QD
     Route: 048
  8. MIRTAZAPIN [Concomitant]
     Dosage: 30 MG, QD
     Route: 048
     Dates: start: 20100813, end: 20101003
  9. MIRTAZAPIN [Concomitant]
     Dosage: 15 MG, QD
     Route: 048
     Dates: start: 20101004, end: 20101111
  10. CYMBALTA [Suspect]
     Dosage: 30 MG, QD
     Route: 048
     Dates: start: 20101214, end: 20110111
  11. MIRTAZAPIN [Concomitant]
     Dosage: 15 MG, QD
     Route: 048
     Dates: start: 20101213, end: 20110110
  12. ENALAPRIL MALEATE [Concomitant]
     Dosage: 20 MG, QD
  13. METOPROLOL TARTRATE [Concomitant]
     Dosage: 95 MG, QD
     Route: 048
  14. VITAMIN D [Concomitant]
     Dosage: 1 DF, QD
     Route: 048
  15. ASPIRIN [Concomitant]
     Dosage: 100 MG, QD
     Route: 048
  16. HYDROCHLOROTHIAZIDE [Concomitant]
     Dosage: 1 DF, QD
     Route: 048

REACTIONS (6)
  - LOSS OF CONSCIOUSNESS [None]
  - ATRIAL FIBRILLATION [None]
  - FALL [None]
  - DRUG LEVEL DECREASED [None]
  - SYNCOPE [None]
  - ATRIAL FLUTTER [None]
